FAERS Safety Report 25379739 (Version 1)
Quarter: 2025Q2

REPORT INFORMATION
  Report Type: Spontaneous
  Country: US (occurrence: None)
  Receive Date: 20250530
  Receipt Date: 20250530
  Transmission Date: 20250716
  Serious: Yes (Hospitalization, Other)
  Sender: FDA-CTU
  Company Number: None

PATIENT
  Age: 38 Year
  Sex: Female
  Weight: 101.7 kg

DRUGS (2)
  1. ESCITALOPRAM [Suspect]
     Active Substance: ESCITALOPRAM OXALATE
     Dates: start: 20080218, end: 20160914
  2. FLUOXETINE [Concomitant]
     Active Substance: FLUOXETINE HYDROCHLORIDE

REACTIONS (15)
  - Drug withdrawal syndrome [None]
  - Skin burning sensation [None]
  - Restlessness [None]
  - Intrusive thoughts [None]
  - Postural orthostatic tachycardia syndrome [None]
  - Impaired gastric emptying [None]
  - Paraesthesia [None]
  - Dizziness [None]
  - Electric shock sensation [None]
  - Muscle spasms [None]
  - Hyperacusis [None]
  - Tinnitus [None]
  - Urticaria [None]
  - Histamine intolerance [None]
  - Spontaneous orgasm [None]

NARRATIVE: CASE EVENT DATE: 20190208
